FAERS Safety Report 16669369 (Version 5)
Quarter: 2019Q4

REPORT INFORMATION
  Report Type: Spontaneous
  Country: KR (occurrence: KR)
  Receive Date: 20190805
  Receipt Date: 20191021
  Transmission Date: 20200122
  Serious: Yes (Other)
  Sender: FDA-Public Use
  Company Number: KR-GLAXOSMITHKLINE-KR2019APC139650

PATIENT

DRUGS (1)
  1. LAMISIL ONCE [Suspect]
     Active Substance: TERBINAFINE HYDROCHLORIDE
     Indication: TINEA PEDIS
     Dosage: UNK

REACTIONS (5)
  - Feeling cold [Unknown]
  - Application site discharge [Unknown]
  - Cellulitis [Recovered/Resolved]
  - Skin exfoliation [Not Recovered/Not Resolved]
  - Application site vesicles [Unknown]
